FAERS Safety Report 8556445-1 (Version None)
Quarter: 2012Q3

REPORT INFORMATION
  Report Type: 
  Country: None (occurrence: None)
  Receive Date: 20120801
  Receipt Date: 20120727
  Transmission Date: 20120928
  Serious: Yes (Hospitalization, Other)
  Sender: FDA-Public Use
  Company Number: PHHY2011CA21027

PATIENT
  Sex: Male

DRUGS (2)
  1. AFINITOR [Suspect]
     Indication: NEUROENDOCRINE TUMOUR
     Dosage: 10 MG EVERY DAY
     Route: 048
     Dates: start: 20110418
  2. SANDOSTATIN LAR [Suspect]
     Indication: NEUROENDOCRINE TUMOUR
     Dosage: 30 MG, BIW
     Route: 030
     Dates: start: 20101025

REACTIONS (8)
  - GASTROINTESTINAL NEOPLASM [None]
  - HEPATIC NEOPLASM [None]
  - ASTHENIA [None]
  - FATIGUE [None]
  - POOR QUALITY SLEEP [None]
  - ABDOMINAL PAIN [None]
  - FAECAL VOLUME INCREASED [None]
  - PALLOR [None]
